FAERS Safety Report 16942256 (Version 1)
Quarter: 2019Q4

REPORT INFORMATION
  Report Type: Spontaneous
  Country: US (occurrence: US)
  Receive Date: 20191021
  Receipt Date: 20191021
  Transmission Date: 20200122
  Serious: No
  Sender: FDA-Public Use
  Company Number: US-SA-2019SA290687

PATIENT
  Age: 25 Year
  Sex: Male

DRUGS (1)
  1. DUPIXENT [Suspect]
     Active Substance: DUPILUMAB
     Indication: DERMATITIS ATOPIC
     Dosage: 300 MG, OTHER
     Route: 058
     Dates: start: 20191010

REACTIONS (5)
  - Dermatitis atopic [Unknown]
  - Pruritus [Unknown]
  - Unevaluable event [Unknown]
  - Dry skin [Unknown]
  - Rash [Unknown]

NARRATIVE: CASE EVENT DATE: 201910
